FAERS Safety Report 23574327 (Version 1)
Quarter: 2024Q1

REPORT INFORMATION
  Report Type: Spontaneous
  Country: US (occurrence: US)
  Receive Date: 20240228
  Receipt Date: 20240228
  Transmission Date: 20240409
  Serious: No
  Sender: FDA-Public Use
  Company Number: US-GSK-US2024AMR024770

PATIENT
  Age: 63 Year
  Sex: Male

DRUGS (1)
  1. BENLYSTA [Suspect]
     Active Substance: BELIMUMAB
     Indication: Systemic lupus erythematosus
     Dosage: UNK
     Dates: start: 20240221

REACTIONS (8)
  - Rash [Unknown]
  - Pruritus [Unknown]
  - Dizziness [Unknown]
  - Insomnia [Unknown]
  - Respiratory rate increased [Unknown]
  - Somnolence [Unknown]
  - Injection site pruritus [Unknown]
  - Loss of personal independence in daily activities [Unknown]

NARRATIVE: CASE EVENT DATE: 20240201
